FAERS Safety Report 5341328-0 (Version None)
Quarter: 2007Q2

REPORT INFORMATION
  Report Type: 
  Country: None (occurrence: None)
  Receive Date: 20070523
  Receipt Date: 20070510
  Transmission Date: 20071010
  Serious: Yes (Other)
  Sender: FDA-Public Use
  Company Number: THYM-11430

PATIENT

DRUGS (8)
  1. THYMOGLOBULIN [Suspect]
     Indication: LIVER TRANSPLANT
     Dosage: 1 MG/KG QD IV
     Route: 042
  2. THYMOGLOBULIN [Suspect]
     Indication: LIVER TRANSPLANT
     Dosage: MG/KG QOD IV
     Route: 042
  3. PARACETAMOL [Concomitant]
  4. DIPHENHYDRAMINE HCL [Concomitant]
  5. METHYLPREDNISOLONE 16MG TAB [Concomitant]
  6. PREDNISOLONE [Concomitant]
  7. TACROLIMUS [Concomitant]
  8. SULFAMETHOXAZOLE AND TRIMETHOPRIM [Concomitant]

REACTIONS (4)
  - ARTHRALGIA [None]
  - COMPLEMENT FACTOR DECREASED [None]
  - PLATELET COUNT DECREASED [None]
  - SERUM SICKNESS [None]
